APPROVED DRUG PRODUCT: KEFLET
Active Ingredient: CEPHALEXIN
Strength: EQ 1GM BASE
Dosage Form/Route: TABLET;ORAL
Application: N050440 | Product #002
Applicant: ELI LILLY AND CO
Approved: Approved Prior to Jan 1, 1982 | RLD: No | RS: No | Type: DISCN